FAERS Safety Report 14118563 (Version 1)
Quarter: 2017Q4

REPORT INFORMATION
  Report Type: Spontaneous
  Country: GB (occurrence: GB)
  Receive Date: 20171024
  Receipt Date: 20171024
  Transmission Date: 20180321
  Serious: Yes (Other)
  Sender: FDA-Public Use
  Company Number: GB-B.I. PHARMACEUTICALS,INC./RIDGEFIELD-2017-16-000105

PATIENT
  Age: 50 Year
  Sex: Female
  Weight: 85.72 kg

DRUGS (1)
  1. CATAPRES [Suspect]
     Active Substance: CLONIDINE HYDROCHLORIDE
     Indication: MENOPAUSAL SYMPTOMS
     Route: 048
     Dates: start: 20170805, end: 20170830

REACTIONS (5)
  - Malaise [Unknown]
  - Urticaria [Not Recovered/Not Resolved]
  - Skin lesion [Unknown]
  - Pruritus [Not Recovered/Not Resolved]
  - Eczema [Not Recovered/Not Resolved]

NARRATIVE: CASE EVENT DATE: 20170810
